FAERS Safety Report 8211853-3 (Version None)
Quarter: 2012Q1

REPORT INFORMATION
  Report Type: 
  Country: None (occurrence: None)
  Receive Date: 20120229
  Receipt Date: 20111116
  Transmission Date: 20120608
  Serious: Yes (Life-Threatening)
  Sender: FDA-Public Use
  Company Number: PHEH2011US009542

PATIENT
  Age: 47 Year
  Sex: Female

DRUGS (1)
  1. TEGRETOL [Suspect]

REACTIONS (3)
  - URTICARIA [None]
  - PYREXIA [None]
  - ABDOMINAL PAIN UPPER [None]
